FAERS Safety Report 24901332 (Version 1)
Quarter: 2025Q1

REPORT INFORMATION
  Report Type: Report from Study
  Country: IE (occurrence: IE)
  Receive Date: 20250129
  Receipt Date: 20250129
  Transmission Date: 20250409
  Serious: Yes (Hospitalization)
  Sender: ROCHE
  Company Number: IE-ROCHE-10000186672

PATIENT
  Sex: Male

DRUGS (1)
  1. OCREVUS [Suspect]
     Active Substance: OCRELIZUMAB
     Indication: Product used for unknown indication
     Route: 040

REACTIONS (4)
  - Eye pain [Unknown]
  - Viral infection [Unknown]
  - Influenza [Unknown]
  - Blood pressure increased [Unknown]
